FAERS Safety Report 4415516-1 (Version None)
Quarter: 2004Q2

REPORT INFORMATION
  Report Type: 
  Country: None (occurrence: None)
  Receive Date: 20040630
  Receipt Date: 20040122
  Transmission Date: 20050107
  Serious: Yes (Other)
  Sender: FDA-Public Use
  Company Number: 2003117420

PATIENT
  Age: 33 Year
  Sex: Female

DRUGS (5)
  1. ZOLOFT [Suspect]
     Indication: PREMENSTRUAL SYNDROME
     Dosage: 50 MG (DAILY), ORAL
     Route: 048
     Dates: start: 20031104
  2. ALL OTHER THERAPEUTIC PRODUCTS (ALL OTHER THERAPEUTIC PRODUCTS) [Suspect]
     Indication: ILL-DEFINED DISORDER
  3. CLARITHROMYCIN [Concomitant]
  4. BUTOCONAZOLE NITRATE (BUTOCONAZOLE NITRATE) [Concomitant]
  5. LEVOTHYROXINE SODIUM [Concomitant]

REACTIONS (5)
  - DRUG INTERACTION [None]
  - FLUSHING [None]
  - HYPERSENSITIVITY [None]
  - SWELLING [None]
  - THROAT TIGHTNESS [None]
